FAERS Safety Report 9710830 (Version 1)
Quarter: 2013Q4

REPORT INFORMATION
  Report Type: Spontaneous
  Country: US (occurrence: US)
  Receive Date: 20131126
  Receipt Date: 20131126
  Transmission Date: 20140711
  Serious: No
  Sender: FDA-Public Use
  Company Number: US-BRISTOL-MYERS SQUIBB COMPANY-19018449

PATIENT
  Age: 70 Year
  Sex: Male

DRUGS (1)
  1. BYDUREON [Suspect]
     Dosage: NO OF INJECTIONS:3
     Dates: start: 2012

REACTIONS (3)
  - Blood glucose increased [Unknown]
  - Injection site extravasation [Unknown]
  - Injection site haemorrhage [Unknown]
